FAERS Safety Report 17946805 (Version 1)
Quarter: 2020Q2

REPORT INFORMATION
  Report Type: Spontaneous
  Country: FR (occurrence: FR)
  Receive Date: 20200625
  Receipt Date: 20200625
  Transmission Date: 20200714
  Serious: Yes (Hospitalization)
  Sender: FDA-Public Use
  Company Number: FR-ALLERGAN-2024131US

PATIENT
  Sex: Female
  Weight: 83 kg

DRUGS (3)
  1. FOSFOMYCIN TROMETHAMINE - BP [Suspect]
     Active Substance: FOSFOMYCIN TROMETHAMINE
     Indication: CYSTITIS
     Dosage: 1 DF
     Route: 048
     Dates: start: 202002
  2. ESCITALOPRAM [Concomitant]
     Active Substance: ESCITALOPRAM OXALATE
     Indication: PRODUCT USED FOR UNKNOWN INDICATION
  3. PREVNAR 13 [Suspect]
     Active Substance: PNEUMOCOCCAL 13-VALENT CONJUGATE VACCINE
     Indication: IMMUNISATION
     Dosage: 1 DF
     Route: 030
     Dates: start: 20200302

REACTIONS (2)
  - Product use issue [Unknown]
  - Purpura non-thrombocytopenic [Not Recovered/Not Resolved]

NARRATIVE: CASE EVENT DATE: 20200307
